FAERS Safety Report 23979438 (Version 1)
Quarter: 2024Q2

REPORT INFORMATION
  Report Type: Report from Study
  Country: CA (occurrence: CA)
  Receive Date: 20240615
  Receipt Date: 20240615
  Transmission Date: 20240716
  Serious: Yes (Other)
  Sender: FDA-Public Use
  Company Number: CA-ABBVIE-5799463

PATIENT
  Sex: Female
  Weight: 145 kg

DRUGS (1)
  1. SKYRIZI [Suspect]
     Active Substance: RISANKIZUMAB-RZAA
     Indication: Crohn^s disease
     Dosage: DOSING: 360 MG OBI?LDD: MAY 2024
     Route: 058
     Dates: start: 20230727

REACTIONS (6)
  - Bloody discharge [Unknown]
  - Fistula [Unknown]
  - Crohn^s disease [Unknown]
  - General physical health deterioration [Unknown]
  - Gastrointestinal stoma complication [Unknown]
  - Arthralgia [Unknown]
